FAERS Safety Report 10393309 (Version 1)
Quarter: 2014Q3

REPORT INFORMATION
  Report Type: Spontaneous
  Country: NZ (occurrence: NZ)
  Receive Date: 20140819
  Receipt Date: 20140819
  Transmission Date: 20150326
  Serious: Yes (Hospitalization, Other)
  Sender: FDA-Public Use
  Company Number: NZ-PFIZER INC-2014225930

PATIENT
  Age: 84 Year
  Sex: Female

DRUGS (4)
  1. EFFEXOR XR [Interacting]
     Active Substance: VENLAFAXINE HYDROCHLORIDE
     Dosage: 150 MG, 2X/DAY
  2. TRAMADOL HCL [Interacting]
     Active Substance: TRAMADOL HYDROCHLORIDE
     Dosage: 200 MG, 2X/DAY
  3. EFFEXOR XR [Suspect]
     Active Substance: VENLAFAXINE HYDROCHLORIDE
     Dosage: UNK
  4. TRAMADOL HCL [Interacting]
     Active Substance: TRAMADOL HYDROCHLORIDE
     Indication: PAIN
     Dosage: UNK

REACTIONS (6)
  - Tremor [Unknown]
  - Pain [Unknown]
  - Drug interaction [Unknown]
  - Fall [Unknown]
  - Serotonin syndrome [Unknown]
  - Anxiety [Unknown]
